FAERS Safety Report 8659216 (Version 5)
Quarter: 2012Q4

REPORT INFORMATION
  Report Type: 
  Country: IE (occurrence: IE)
  Receive Date: 20120711
  Receipt Date: 20120830
  Transmission Date: 20130627
  Serious: Yes (Hospitalization, Other)
  Sender: FDA-Public Use
  Company Number: PHFR2012IE003679

PATIENT
  Age: 53 Year
  Sex: Male

DRUGS (3)
  1. CLOZARIL [Suspect]
     Indication: SCHIZOPHRENIA
     Dosage: 500 mg, UNK
     Route: 048
     Dates: start: 20030714
  2. VALPROATE SODIUM [Concomitant]
     Indication: AFFECTIVE DISORDER
     Dosage: 1600
     Route: 048
  3. KWELLS [Concomitant]
     Indication: DROOLING
     Dosage: UNK UKN, UNK
     Route: 048

REACTIONS (6)
  - Tuberculosis [Recovered/Resolved]
  - Neoplasm malignant [Recovered/Resolved]
  - Respiratory distress [Recovered/Resolved]
  - Pleural effusion [Recovered/Resolved]
  - Neutrophil count increased [Recovered/Resolved]
  - White blood cell count increased [Recovered/Resolved]
